FAERS Safety Report 7723360-2 (Version None)
Quarter: 2011Q3

REPORT INFORMATION
  Report Type: 
  Country: None (occurrence: None)
  Receive Date: 20110901
  Receipt Date: 20100920
  Transmission Date: 20111222
  Serious: No
  Sender: FDA-Public Use
  Company Number: US-KINGPHARMUSA00001-K201001168

PATIENT
  Age: 80 Year
  Sex: Female

DRUGS (2)
  1. SONATA [Suspect]
     Indication: MIDDLE INSOMNIA
     Dosage: 5 MG, PRN
     Route: 048
     Dates: start: 20090405, end: 20090101
  2. GLUCOSAMINE W/CHONDROITIN SULFATE [Concomitant]
     Indication: CARTILAGE ATROPHY

REACTIONS (2)
  - FEELING JITTERY [None]
  - RESTLESS LEGS SYNDROME [None]
